FAERS Safety Report 15607376 (Version 10)
Quarter: 2019Q1

REPORT INFORMATION
  Report Type: Report from Study
  Country: None (occurrence: IL)
  Receive Date: 20181112
  Receipt Date: 20190206
  Transmission Date: 20190417
  Serious: Yes (Hospitalization, Other)
  Sender: FDA-Public Use
  Company Number: IL-ABBVIE-18S-082-2544942-00

PATIENT
  Age: 65 Year
  Sex: Male

DRUGS (4)
  1. DUODOPA [Suspect]
     Active Substance: CARBIDOPA\LEVODOPA
     Dosage: CURRENT: MD 13, CD 3.8,ND 2.3, ED1.5.
     Route: 050
     Dates: start: 2018, end: 2018
  2. DUODOPA [Suspect]
     Active Substance: CARBIDOPA\LEVODOPA
     Dosage: MD 5ML,CD 3.8ML/HOUR,ND2.3ML/HOUR,ED 1.5ML
     Route: 050
  3. DUODOPA [Suspect]
     Active Substance: CARBIDOPA\LEVODOPA
     Indication: PARKINSON^S DISEASE
     Dosage: CMD- 13 ML, CFR- 3.8 ML/ HOUR, CND 2.3 ML, CED-1.5ML
     Route: 050
     Dates: start: 20180702, end: 2018
  4. DUODOPA [Suspect]
     Active Substance: CARBIDOPA\LEVODOPA
     Dosage: MD 8ML,CD 3.8ML/HOUR,ND2.3ML/HOUR,ED 1.5ML
     Route: 050
     Dates: start: 2018

REACTIONS (17)
  - On and off phenomenon [Unknown]
  - Volvulus [Unknown]
  - Mass [Unknown]
  - Condition aggravated [Recovering/Resolving]
  - Intestinal obstruction [Unknown]
  - On and off phenomenon [Unknown]
  - Infection [Unknown]
  - Foot operation [Recovered/Resolved]
  - Altered state of consciousness [Recovering/Resolving]
  - Dyskinesia [Recovered/Resolved]
  - Abdominal pain [Unknown]
  - Metastases to liver [Unknown]
  - Cerebral haemorrhage [Unknown]
  - Foot deformity [Recovered/Resolved]
  - Post procedural infection [Unknown]
  - Dyskinesia [Unknown]
  - Pain in extremity [Unknown]

NARRATIVE: CASE EVENT DATE: 2018
